FAERS Safety Report 11876100 (Version 4)
Quarter: 2016Q1

REPORT INFORMATION
  Report Type: Spontaneous
  Country: GB (occurrence: GB)
  Receive Date: 20151229
  Receipt Date: 20160210
  Transmission Date: 20160526
  Serious: Yes (Death, Disabling)
  Sender: FDA-Public Use
  Company Number: GB-TAKEDA-2015MPI008754

PATIENT
  Age: 54 Year
  Sex: Male
  Weight: 79 kg

DRUGS (6)
  1. VELCADE [Suspect]
     Active Substance: BORTEZOMIB
     Indication: PLASMA CELL MYELOMA
     Dosage: 2.5 MG, 1/WEEK
     Route: 058
     Dates: start: 20150626, end: 20150818
  2. LORAZEPAM. [Concomitant]
     Active Substance: LORAZEPAM
     Indication: HUNTINGTON^S DISEASE
     Dosage: 1 MG, BID
     Route: 065
  3. DULOXETINE. [Concomitant]
     Active Substance: DULOXETINE
     Indication: ANXIETY
     Dosage: 60 MG, QD
     Route: 065
  4. LAMOTRIGINE. [Concomitant]
     Active Substance: LAMOTRIGINE
     Indication: HUNTINGTON^S DISEASE
     Dosage: 150 MG, BID
     Route: 065
  5. AMITRIPTYLINE                      /00002202/ [Concomitant]
     Active Substance: AMITRIPTYLINE
     Indication: HUNTINGTON^S DISEASE
     Dosage: 25 MG, QD
     Route: 065
  6. AMANTADINE [Concomitant]
     Active Substance: AMANTADINE
     Indication: HUNTINGTON^S DISEASE
     Dosage: 100 MG, BID
     Route: 065

REACTIONS (2)
  - Huntington^s disease [Fatal]
  - Drug ineffective [Unknown]

NARRATIVE: CASE EVENT DATE: 20150828
